FAERS Safety Report 4493395-4 (Version None)
Quarter: 2004Q4

REPORT INFORMATION
  Report Type: 
  Country: None (occurrence: None)
  Receive Date: 20041104
  Receipt Date: 20041020
  Transmission Date: 20050328
  Serious: Yes (Hospitalization, Disabling)
  Sender: FDA-Public Use
  Company Number: US-MERCK-0410USA03119

PATIENT
  Age: 59 Year
  Sex: Female

DRUGS (6)
  1. VIOXX [Suspect]
     Indication: ARTHRITIS
     Route: 048
     Dates: start: 20020403, end: 20040814
  2. VIOXX [Suspect]
     Indication: FIBROMYALGIA
     Route: 048
     Dates: start: 20020403, end: 20040814
  3. FLEXERIL [Concomitant]
     Route: 065
  4. NORVASC [Concomitant]
     Route: 065
  5. ISMO [Concomitant]
     Route: 065
  6. CORGARD [Concomitant]
     Route: 065

REACTIONS (3)
  - LUNG NEOPLASM [None]
  - RECTAL HAEMORRHAGE [None]
  - RENAL DISORDER [None]
